FAERS Safety Report 14882010 (Version 2)
Quarter: 2018Q3

REPORT INFORMATION
  Report Type: Spontaneous
  Country: FR (occurrence: FR)
  Receive Date: 20180511
  Receipt Date: 20180726
  Transmission Date: 20181010
  Serious: Yes (Death, Life-Threatening, Other)
  Sender: FDA-Public Use
  Company Number: FR-SA-2018SA127726

PATIENT
  Age: 28 Year
  Sex: Male
  Weight: 171 kg

DRUGS (14)
  1. FUROSEMIDE. [Suspect]
     Active Substance: FUROSEMIDE
     Dosage: 1 DF,QD
     Route: 065
  2. FENOFIBRATE. [Suspect]
     Active Substance: FENOFIBRATE
     Dosage: 145 MG,QD
     Route: 065
  3. METFORMIN [Suspect]
     Active Substance: METFORMIN HYDROCHLORIDE
     Dosage: 2 DF,QD
     Route: 065
  4. ZOPICLONE AVENTIS [Suspect]
     Active Substance: ZOPICLONE
     Route: 065
  5. BROMAZEPAM [Suspect]
     Active Substance: BROMAZEPAM
     Dosage: 4 DF,QD
     Route: 065
  6. ACTISKENAN [Suspect]
     Active Substance: MORPHINE SULFATE
     Dosage: 4 DF,QD
     Route: 065
  7. LANTUS SOLOSTAR [Suspect]
     Active Substance: INSULIN GLARGINE
     Route: 065
  8. THIOCOLCHICOSIDE [Suspect]
     Active Substance: THIOCOLCHICOSIDE
     Dosage: UNK UNK,UNK
     Route: 065
  9. APROVEL [Suspect]
     Active Substance: IRBESARTAN
     Dosage: 1 DF,QD
     Route: 048
  10. NOCTAMIDE [Suspect]
     Active Substance: LORMETAZEPAM
     Dosage: 1 DF,QD
     Route: 065
  11. HUMALOG [Suspect]
     Active Substance: INSULIN LISPRO
     Dosage: 12 DF,QD
     Route: 065
  12. NUCTALON [Suspect]
     Active Substance: ESTAZOLAM
     Dosage: 3 DF,QD
     Route: 065
  13. TERCIAN [CYAMEMAZINE] [Suspect]
     Active Substance: CYAMEMAZINE
     Dosage: 5 DF,QD
     Route: 065
  14. FLUOXETINE [Suspect]
     Active Substance: FLUOXETINE HYDROCHLORIDE
     Dosage: 2 DF,QD
     Route: 065

REACTIONS (3)
  - Myocardial infarction [Fatal]
  - Acute myocardial infarction [Fatal]
  - Overdose [Unknown]
